FAERS Safety Report 6655339-6 (Version None)
Quarter: 2010Q1

REPORT INFORMATION
  Report Type: 
  Country: None (occurrence: None)
  Receive Date: 20100329
  Receipt Date: 20100315
  Transmission Date: 20100710
  Serious: Yes (Other)
  Sender: FDA-Public Use
  Company Number: PHHY2010AU12927

PATIENT
  Sex: Female

DRUGS (1)
  1. ZADITEN [Suspect]
     Indication: EYE ALLERGY
     Dosage: UNK
     Route: 061
     Dates: start: 20100302, end: 20100302

REACTIONS (1)
  - HYPERSENSITIVITY [None]
